FAERS Safety Report 6282851-4 (Version None)
Quarter: 2009Q3

REPORT INFORMATION
  Report Type: 
  Country: None (occurrence: None)
  Receive Date: 20090724
  Receipt Date: 20090724
  Transmission Date: 20100115
  Serious: Yes (Hospitalization, Other)
  Sender: FDA-Public Use
  Company Number: PT-ABBOTT-08P-130-0487471-00

PATIENT
  Sex: Female

DRUGS (2)
  1. HUMIRA [Suspect]
     Indication: CROHN'S DISEASE
     Route: 058
     Dates: start: 20070823, end: 20081024
  2. HUMIRA [Suspect]

REACTIONS (11)
  - ARTHRALGIA [None]
  - CROHN'S DISEASE [None]
  - ERYTHEMA [None]
  - LEUKOCYTOCLASTIC VASCULITIS [None]
  - PAIN [None]
  - PAIN IN EXTREMITY [None]
  - PALPABLE PURPURA [None]
  - PETECHIAE [None]
  - RASH MACULAR [None]
  - SKIN LESION [None]
  - VASCULITIS [None]
